FAERS Safety Report 14876256 (Version 1)
Quarter: 2018Q2

REPORT INFORMATION
  Report Type: Report from Study
  Country: ES (occurrence: ES)
  Receive Date: 20180510
  Receipt Date: 20180510
  Transmission Date: 20180711
  Serious: Yes (Hospitalization)
  Sender: FDA-Public Use
  Company Number: ES-TEVA-2018-ES-891698

PATIENT
  Age: 82 Year
  Sex: Female

DRUGS (1)
  1. CAPTOPRIL (3871A) [Suspect]
     Active Substance: CAPTOPRIL
     Indication: HYPERTENSIVE CRISIS
     Route: 060
     Dates: start: 20160824, end: 20160824

REACTIONS (2)
  - Pharyngeal oedema [Recovered/Resolved]
  - Respiratory distress [Recovered/Resolved]

NARRATIVE: CASE EVENT DATE: 20160824
